FAERS Safety Report 5202955-4 (Version None)
Quarter: 2006Q4

REPORT INFORMATION
  Report Type: 
  Country: None (occurrence: None)
  Receive Date: 20061018
  Receipt Date: 20051229
  Transmission Date: 20070319
  Serious: Yes (Other)
  Sender: FDA-Public Use
  Company Number: PHEH2005US13932

PATIENT
  Age: 60 Year
  Sex: Female
  Weight: 60.4 kg

DRUGS (1)
  1. ZOMETA [Suspect]
     Indication: METASTASES TO BONE
     Dosage: 4MG ONCE, INTRAVENOUS
     Route: 042
     Dates: start: 20051208, end: 20051208

REACTIONS (4)
  - ARTHRALGIA [None]
  - BACK PAIN [None]
  - HYPOKALAEMIA [None]
  - OEDEMA PERIPHERAL [None]
